FAERS Safety Report 16040820 (Version 1)
Quarter: 2019Q1

REPORT INFORMATION
  Report Type: Spontaneous
  Country: US (occurrence: US)
  Receive Date: 20190306
  Receipt Date: 20190306
  Transmission Date: 20190418
  Serious: No
  Sender: FDA-Public Use
  Company Number: US-APOTEX-2018AP011936

PATIENT
  Sex: Female

DRUGS (2)
  1. TRANEXAMIC ACID TABLETS [Suspect]
     Active Substance: TRANEXAMIC ACID
     Dosage: 1 DF, TID
     Route: 065
  2. TRANEXAMIC ACID TABLETS [Suspect]
     Active Substance: TRANEXAMIC ACID
     Indication: PRODUCT USED FOR UNKNOWN INDICATION
     Dosage: 2 DF, TID
     Route: 065

REACTIONS (7)
  - Limb discomfort [Unknown]
  - Fibromyalgia [Unknown]
  - Muscular weakness [Unknown]
  - Headache [Unknown]
  - Myalgia [Unknown]
  - Back pain [Unknown]
  - Product substitution issue [Unknown]
